FAERS Safety Report 13141343 (Version 1)
Quarter: 2017Q1

REPORT INFORMATION
  Report Type: Spontaneous
  Country: GB (occurrence: GB)
  Receive Date: 20170123
  Receipt Date: 20170123
  Transmission Date: 20170428
  Serious: Yes (Other)
  Sender: FDA-Public Use
  Company Number: GB-009507513-1701GBR008070

PATIENT
  Age: 68 Year
  Sex: Male
  Weight: 62 kg

DRUGS (7)
  1. VIEKIRAX [Suspect]
     Active Substance: OMBITASVIR\PARITAPREVIR\RITONAVIR
     Indication: CHRONIC HEPATITIS C
     Dosage: 2 DF, QD, VIEKIRAX 12.5/75/50MG X2 ONCE DAILY
     Route: 048
     Dates: start: 20161025, end: 20161220
  2. CALCIUM (UNSPECIFIED) [Concomitant]
     Active Substance: CALCIUM
     Dosage: STOPPED FOR TREATMENT
  3. FOLIC ACID. [Suspect]
     Active Substance: FOLIC ACID
  4. EXVIERA [Suspect]
     Active Substance: DASABUVIR
     Indication: CHRONIC HEPATITIS C
     Dosage: 250 MG, BID
     Route: 048
     Dates: start: 20161025, end: 20161220
  5. CITALOPRAM [Concomitant]
     Active Substance: CITALOPRAM HYDROBROMIDE
  6. SIMVASTATIN. [Concomitant]
     Active Substance: SIMVASTATIN
     Dosage: STOPPED FOR TREATMENT
     Route: 048
  7. RIBAVIRIN. [Suspect]
     Active Substance: RIBAVIRIN
     Indication: CHRONIC HEPATITIS C
     Dosage: 600 MG, BID, (TO START)
     Route: 048
     Dates: start: 20161025, end: 20161128

REACTIONS (4)
  - Interstitial lung disease [Not Recovered/Not Resolved]
  - Rash [Not Recovered/Not Resolved]
  - Palpitations [Unknown]
  - Dyspnoea [Unknown]

NARRATIVE: CASE EVENT DATE: 20161122
